FAERS Safety Report 19762956 (Version 1)
Quarter: 2021Q3

REPORT INFORMATION
  Report Type: Spontaneous
  Country: US (occurrence: US)
  Receive Date: 20210830
  Receipt Date: 20210830
  Transmission Date: 20211014
  Serious: Yes (Hospitalization)
  Sender: FDA-Public Use
  Company Number: None

PATIENT
  Age: 74 Year
  Sex: Male
  Weight: 107.1 kg

DRUGS (3)
  1. ACETAMINOPHEN 650 MG [Concomitant]
     Active Substance: ACETAMINOPHEN
     Dates: start: 20210828, end: 20210828
  2. DIPHENHYDRAMINE 50 MG [Concomitant]
     Dates: start: 20210828, end: 20210828
  3. REGEN?COV [Suspect]
     Active Substance: CASIRIVIMAB\IMDEVIMAB
     Indication: EXPOSURE TO SARS-COV-2
     Dosage: ?          OTHER FREQUENCY:ONE TIME;?
     Route: 042
     Dates: start: 20210828, end: 20210828

REACTIONS (5)
  - Oxygen saturation decreased [None]
  - Serum ferritin increased [None]
  - COVID-19 [None]
  - C-reactive protein increased [None]
  - Dyspnoea [None]

NARRATIVE: CASE EVENT DATE: 20210828
